FAERS Safety Report 4667057-4 (Version None)
Quarter: 2005Q2

REPORT INFORMATION
  Report Type: 
  Country: None (occurrence: None)
  Receive Date: 20050520
  Receipt Date: 20041216
  Transmission Date: 20051028
  Serious: Yes (Other)
  Sender: FDA-Public Use
  Company Number: PHEH2004US13805

PATIENT
  Age: 64 Year
  Sex: Female

DRUGS (3)
  1. AREDIA [Suspect]
     Indication: BREAST CANCER METASTATIC
     Dosage: 90 MG, QMO
     Dates: start: 20020506, end: 20040716
  2. FEMARA [Concomitant]
     Indication: BREAST CANCER METASTATIC
     Dosage: 2.5 MG, UNK
     Dates: start: 20020502
  3. XELODA [Concomitant]
     Indication: ANAEMIA
     Dosage: 2500 MG/M2 FOR 14 DAYS Q4 WEEKS
     Dates: start: 20010827, end: 20040404

REACTIONS (8)
  - BACTERIA TISSUE SPECIMEN IDENTIFIED [None]
  - BONE DISORDER [None]
  - DENTAL TREATMENT [None]
  - JAW OPERATION [None]
  - OSTEOMYELITIS [None]
  - OSTEONECROSIS [None]
  - PAIN IN JAW [None]
  - TOOTH EXTRACTION [None]
